FAERS Safety Report 13952336 (Version 1)
Quarter: 2017Q3

REPORT INFORMATION
  Report Type: Spontaneous
  Country: US (occurrence: US)
  Receive Date: 20170911
  Receipt Date: 20170911
  Transmission Date: 20171128
  Serious: No
  Sender: FDA-Public Use
  Company Number: US-TEVA-702962USA

PATIENT
  Sex: Male
  Weight: 66.74 kg

DRUGS (2)
  1. FENTANYL. [Suspect]
     Active Substance: FENTANYL
     Indication: BACK PAIN
     Dosage: 75MCG 5
     Route: 062
     Dates: start: 2016
  2. FENTANYL. [Suspect]
     Active Substance: FENTANYL
     Indication: ARTHRITIS

REACTIONS (8)
  - Feeling abnormal [Unknown]
  - Panic reaction [Unknown]
  - Feeding disorder [Unknown]
  - Skin reaction [Unknown]
  - Tachyphrenia [Unknown]
  - Drug administered at inappropriate site [Unknown]
  - Somnolence [Unknown]
  - Tremor [Unknown]

NARRATIVE: CASE EVENT DATE: 2016
